FAERS Safety Report 10432529 (Version 2)
Quarter: 2014Q4

REPORT INFORMATION
  Report Type: Spontaneous
  Country: US (occurrence: US)
  Receive Date: 20140905
  Receipt Date: 20141209
  Transmission Date: 20150528
  Serious: Yes (Other)
  Sender: FDA-Public Use
  Company Number: US-JNJFOC-20140824710

PATIENT

DRUGS (4)
  1. ABCIXIMAB [Suspect]
     Active Substance: ABCIXIMAB
     Indication: CARDIOVASCULAR EVENT PROPHYLAXIS
     Dosage: 0.15-0.25 MG/KG BOLUS ONLY DURING CORONARY INTERVENTION
     Route: 022
  2. ABCIXIMAB [Suspect]
     Active Substance: ABCIXIMAB
     Indication: ANTIPLATELET THERAPY
     Dosage: 0.25 MG/KG BOLUS PLUS 0.125 UG/KG/MIN FOR 12 HOURS
     Route: 040
  3. ABCIXIMAB [Suspect]
     Active Substance: ABCIXIMAB
     Indication: ANTIPLATELET THERAPY
     Dosage: 0.15-0.25 MG/KG BOLUS ONLY DURING CORONARY INTERVENTION
     Route: 022
  4. ABCIXIMAB [Suspect]
     Active Substance: ABCIXIMAB
     Indication: CARDIOVASCULAR EVENT PROPHYLAXIS
     Dosage: 0.25 MG/KG BOLUS PLUS 0.125 UG/KG/MIN FOR 12 HOURS
     Route: 040

REACTIONS (8)
  - Procedural complication [Unknown]
  - Pulse absent [Unknown]
  - Retroperitoneal haemorrhage [Unknown]
  - Thrombocytopenia [Unknown]
  - Haemorrhage [Unknown]
  - Urogenital haemorrhage [Unknown]
  - Gastrointestinal haemorrhage [Unknown]
  - Incorrect route of drug administration [Unknown]
